FAERS Safety Report 15411347 (Version 4)
Quarter: 2019Q1

REPORT INFORMATION
  Report Type: Spontaneous
  Country: US (occurrence: US)
  Receive Date: 20180921
  Receipt Date: 20190128
  Transmission Date: 20190417
  Serious: No
  Sender: FDA-Public Use
  Company Number: US-PFIZER INC-2018383244

PATIENT
  Age: 52 Year
  Sex: Male
  Weight: 90.72 kg

DRUGS (2)
  1. LYRICA [Suspect]
     Active Substance: PREGABALIN
     Indication: POLYNEUROPATHY
     Dosage: UNK
     Route: 048
     Dates: end: 20180914
  2. LYRICA [Suspect]
     Active Substance: PREGABALIN
     Dosage: 100 MG, 3X/DAY
     Route: 048

REACTIONS (4)
  - Vomiting [Recovered/Resolved]
  - Nausea [Recovered/Resolved]
  - Intentional product misuse [Unknown]
  - Malaise [Recovered/Resolved]

NARRATIVE: CASE EVENT DATE: 2018
